FAERS Safety Report 14598853 (Version 1)
Quarter: 2018Q1

REPORT INFORMATION
  Report Type: Spontaneous
  Country: US (occurrence: US)
  Receive Date: 20180302
  Receipt Date: 20180302
  Transmission Date: 20180509
  Serious: Yes (Other)
  Sender: FDA-Public Use
  Company Number: None

PATIENT
  Age: 47 Year
  Sex: Female
  Weight: 104.4 kg

DRUGS (6)
  1. LYRICA 50MG PO BID [Concomitant]
  2. RANITIDINE 150MG PO BID [Concomitant]
  3. AUBAGIO [Suspect]
     Active Substance: TERIFLUNOMIDE
     Indication: MULTIPLE SCLEROSIS
     Route: 048
     Dates: start: 20170413, end: 20180301
  4. BACLOFEN 20MG TID PO [Concomitant]
  5. CYMBALTA 60 MG PO QD [Concomitant]
  6. VITAMIN D2 50000U QWEEK [Concomitant]

REACTIONS (1)
  - Invasive ductal breast carcinoma [None]

NARRATIVE: CASE EVENT DATE: 20180215
